FAERS Safety Report 14290926 (Version 1)
Quarter: 2017Q4

REPORT INFORMATION
  Report Type: Spontaneous
  Country: DE (occurrence: DE)
  Receive Date: 20171215
  Receipt Date: 20171215
  Transmission Date: 20180321
  Serious: Yes (Hospitalization, Other)
  Sender: FDA-Public Use
  Company Number: DE-MYLANLABS-2017M1078206

PATIENT
  Age: 45 Year
  Sex: Female
  Weight: 51 kg

DRUGS (3)
  1. THOMAPYRIN INTENSIV [Interacting]
     Active Substance: ACETAMINOPHEN\ASPIRIN\CAFFEINE
     Indication: MIGRAINE
     Dosage: 12 TABLETS
  2. LAMOTRIGINE MYLAN [Suspect]
     Active Substance: LAMOTRIGINE
     Indication: GENERALISED TONIC-CLONIC SEIZURE
     Dosage: 75-0-100
     Route: 048
     Dates: start: 201510
  3. LAMOTRIGINE MYLAN [Suspect]
     Active Substance: LAMOTRIGINE
     Dosage: 1-0-1
     Route: 048

REACTIONS (2)
  - Generalised tonic-clonic seizure [Recovered/Resolved]
  - Drug interaction [Recovered/Resolved]

NARRATIVE: CASE EVENT DATE: 201709
